FAERS Safety Report 6974034-7 (Version None)
Quarter: 2010Q3

REPORT INFORMATION
  Report Type: 
  Country: None (occurrence: None)
  Receive Date: 20100907
  Receipt Date: 20100825
  Transmission Date: 20110219
  Serious: Yes (Hospitalization)
  Sender: FDA-Public Use
  Company Number: 2010NA000026

PATIENT
  Age: 55 Year
  Sex: Male

DRUGS (2)
  1. CAMBIA (DICLOFENAC POTASSIUM) [Suspect]
     Indication: ARTHRALGIA
     Dosage: ;QD
  2. COROSOLIC ACID (NO PREF. NAME) [Suspect]
     Dosage: ;QD

REACTIONS (6)
  - BLOOD POTASSIUM INCREASED [None]
  - DECREASED APPETITE [None]
  - HAEMODIALYSIS [None]
  - HYPOXIA [None]
  - LACTIC ACIDOSIS [None]
  - RENAL FAILURE ACUTE [None]
